FAERS Safety Report 5252864-X (Version None)
Quarter: 2007Q1

REPORT INFORMATION
  Report Type: 
  Country: None (occurrence: None)
  Receive Date: 20070227
  Receipt Date: 20070214
  Transmission Date: 20070707
  Serious: Yes (Other)
  Sender: FDA-Public Use
  Company Number: CIP07000358

PATIENT
  Sex: Female

DRUGS (3)
  1. RISEDRONATE SODIUM [Suspect]
     Dosage: 2.5 MG DAILY, ORAL
     Route: 048
     Dates: start: 20061204, end: 20070119
  2. ONEALFA(ALFACALCIDOL) [Suspect]
     Dosage: ORAL
     Route: 048
  3. IBRUPROFEN [Suspect]
     Dosage: ORAL
     Route: 048

REACTIONS (2)
  - HEPATIC FUNCTION ABNORMAL [None]
  - JAUNDICE [None]
